FAERS Safety Report 12157871 (Version 1)
Quarter: 2016Q1

REPORT INFORMATION
  Report Type: Spontaneous
  Country: US (occurrence: US)
  Receive Date: 20160308
  Receipt Date: 20160308
  Transmission Date: 20160526
  Serious: Yes (Hospitalization)
  Sender: FDA-Public Use
  Company Number: US-JNJFOC-20150118415

PATIENT
  Sex: Female

DRUGS (2)
  1. IMBRUVICA [Suspect]
     Active Substance: IBRUTINIB
     Indication: HYPOKALAEMIA
     Route: 048
     Dates: start: 20140312
  2. IMBRUVICA [Suspect]
     Active Substance: IBRUTINIB
     Indication: B-CELL LYMPHOMA STAGE II
     Route: 048
     Dates: start: 20140312

REACTIONS (1)
  - Pneumonia fungal [Unknown]

NARRATIVE: CASE EVENT DATE: 20140715
